FAERS Safety Report 10792483 (Version 1)
Quarter: 2015Q1

REPORT INFORMATION
  Report Type: Spontaneous
  Country: US (occurrence: None)
  Receive Date: 20150211
  Receipt Date: 20150211
  Transmission Date: 20150721
  Serious: Yes (Death, Other)
  Sender: FDA-Public Use
  Company Number: LH201500096

PATIENT

DRUGS (1)
  1. MAKENA [Suspect]
     Active Substance: HYDROXYPROGESTERONE CAPROATE
     Indication: EXPOSURE DURING PREGNANCY
     Dates: start: 20141027, end: 20150116

REACTIONS (5)
  - Foetal hypokinesia [None]
  - Premature baby [None]
  - Maternal drugs affecting foetus [None]
  - Stillbirth [None]
  - Foetal heart rate abnormal [None]

NARRATIVE: CASE EVENT DATE: 20150113
